FAERS Safety Report 9051305 (Version 1)
Quarter: 2013Q1

REPORT INFORMATION
  Report Type: Spontaneous
  Country: CA (occurrence: CA)
  Receive Date: 20130206
  Receipt Date: 20130206
  Transmission Date: 20140127
  Serious: Yes (Death)
  Sender: FDA-Public Use
  Company Number: PHHY2012CA019215

PATIENT
  Age: 62 None
  Sex: Female

DRUGS (3)
  1. SANDOSTATIN LAR [Suspect]
     Indication: COLORECTAL CANCER
     Dosage: 30 MG, MONTHLY
     Route: 030
     Dates: start: 20120223
  2. SANDOSTATIN LAR [Suspect]
     Dosage: 30 MG EVERY 4 WEEKS
     Route: 030
     Dates: end: 2012
  3. SANDOSTATIN [Suspect]
     Indication: COLORECTAL CANCER
     Route: 058

REACTIONS (2)
  - Death [Fatal]
  - Diarrhoea [Unknown]
